FAERS Safety Report 7329801-7 (Version None)
Quarter: 2011Q1

REPORT INFORMATION
  Report Type: 
  Country: None (occurrence: None)
  Receive Date: 20110303
  Receipt Date: 20110207
  Transmission Date: 20110831
  Serious: No
  Sender: FDA-Public Use
  Company Number: US-B.I. PHARMACEUTICALS,INC./RIDGEFIELD-2011-BP-04367BP

PATIENT
  Age: 60 Year
  Sex: Female

DRUGS (2)
  1. CATAPRES-TTS-1 [Suspect]
     Indication: HYPERTENSION
     Route: 061
  2. CLONIDINE [Suspect]
     Indication: HYPERTENSION

REACTIONS (2)
  - VOMITING [None]
  - HYPERTENSION [None]
